FAERS Safety Report 7937510-6 (Version None)
Quarter: 2011Q4

REPORT INFORMATION
  Report Type: 
  Country: None (occurrence: None)
  Receive Date: 20111123
  Receipt Date: 20111114
  Transmission Date: 20120403
  Serious: Yes (Disabling, Other)
  Sender: FDA-Public Use
  Company Number: CA-ASTRAZENECA-2011SE68837

PATIENT
  Age: 70 Year
  Sex: Female
  Weight: 68 kg

DRUGS (8)
  1. NEXIUM [Suspect]
     Route: 048
  2. LIPITOR [Concomitant]
     Route: 048
  3. SYNTHROID [Concomitant]
     Route: 048
  4. HYDROCHLOROTHIAZIDE [Concomitant]
     Route: 048
  5. METFORMIN [Concomitant]
     Route: 048
  6. MONOPRIL [Concomitant]
     Route: 048
  7. PMS-METOPROLOL-L [Concomitant]
     Route: 048
  8. ACETYLSALICYLIC ACID SRT [Concomitant]
     Route: 048

REACTIONS (13)
  - ABDOMINAL DISCOMFORT [None]
  - MUSCULAR WEAKNESS [None]
  - MYALGIA [None]
  - HYPOAESTHESIA [None]
  - DRY MOUTH [None]
  - HEART RATE INCREASED [None]
  - PALPITATIONS [None]
  - RENAL PAIN [None]
  - DIZZINESS [None]
  - BLOOD PRESSURE FLUCTUATION [None]
  - DYSPNOEA [None]
  - VERTIGO [None]
  - HEADACHE [None]
